FAERS Safety Report 5350720-X (Version None)
Quarter: 2007Q2

REPORT INFORMATION
  Report Type: 
  Country: None (occurrence: None)
  Receive Date: 20070608
  Receipt Date: 20070531
  Transmission Date: 20071010
  Serious: No
  Sender: FDA-Public Use
  Company Number: US-ASTRAZENECA-2006UW08142

PATIENT
  Age: 558 Month
  Sex: Male
  Weight: 118.2 kg

DRUGS (2)
  1. SEROQUEL [Suspect]
     Indication: BIPOLAR DISORDER
     Route: 048
     Dates: start: 20000601
  2. ZYPREXA [Concomitant]

REACTIONS (1)
  - DIABETES MELLITUS [None]
